FAERS Safety Report 12656953 (Version 1)
Quarter: 2016Q3

REPORT INFORMATION
  Report Type: Report from Study
  Country: US (occurrence: US)
  Receive Date: 20160816
  Receipt Date: 20160816
  Transmission Date: 20161109
  Serious: Yes (Other)
  Sender: FDA-Public Use
  Company Number: US-GILEAD-2016-0228556

PATIENT
  Age: 37 Year
  Sex: Male

DRUGS (2)
  1. DAKLINZA [Suspect]
     Active Substance: DACLATASVIR
     Indication: HEPATITIS C
     Dosage: UNK
     Route: 065
     Dates: end: 2016
  2. SOFOSBUVIR [Suspect]
     Active Substance: SOFOSBUVIR
     Indication: HEPATITIS C
     Dosage: 400 MG, UNK
     Route: 048
     Dates: start: 201607

REACTIONS (7)
  - Hypersensitivity [Unknown]
  - Fatigue [Unknown]
  - Skin haemorrhage [Unknown]
  - Dizziness [Unknown]
  - Impaired driving ability [Unknown]
  - Cognitive disorder [Unknown]
  - Pruritus [Unknown]
